FAERS Safety Report 24093799 (Version 1)
Quarter: 2024Q3

REPORT INFORMATION
  Report Type: Spontaneous
  Country: US (occurrence: US)
  Receive Date: 20240716
  Receipt Date: 20240716
  Transmission Date: 20241016
  Serious: No
  Sender: JOHNSON AND JOHNSON
  Company Number: US-JNJFOC-20240718193

PATIENT
  Age: 38 Year
  Sex: Female

DRUGS (7)
  1. TYLENOL [Suspect]
     Active Substance: ACETAMINOPHEN
     Indication: Sunburn
     Route: 065
     Dates: start: 202406
  2. TYLENOL [Suspect]
     Active Substance: ACETAMINOPHEN
     Indication: Blister
  3. IBUPROFEN [Suspect]
     Active Substance: IBUPROFEN
     Indication: Sunburn
     Route: 065
     Dates: start: 202406
  4. IBUPROFEN [Suspect]
     Active Substance: IBUPROFEN
     Indication: Blister
  5. LIDOCAINE HYDROCHLORIDE [Suspect]
     Active Substance: LIDOCAINE HYDROCHLORIDE
     Indication: Sunburn
     Route: 061
     Dates: start: 202406
  6. LIDOCAINE HYDROCHLORIDE [Suspect]
     Active Substance: LIDOCAINE HYDROCHLORIDE
     Indication: Blister
  7. NEUTROGENA ULTRA SHEER BODY MIST SUNSCREEN BROAD SPECTRUM SPF 70 [Concomitant]
     Indication: Product used for unknown indication
     Dosage: 2 SPRAYS PER AREA
     Route: 061
     Dates: start: 20240629

REACTIONS (1)
  - Product use in unapproved indication [Unknown]

NARRATIVE: CASE EVENT DATE: 20240601
